FAERS Safety Report 10556465 (Version 1)
Quarter: 2014Q4

REPORT INFORMATION
  Report Type: Spontaneous
  Country: US (occurrence: US)
  Receive Date: 20141031
  Receipt Date: 20141031
  Transmission Date: 20150529
  Serious: Yes (Other)
  Sender: FDA-Public Use
  Company Number: US-BEH-2014045840

PATIENT
  Sex: Male

DRUGS (1)
  1. HIZENTRA [Suspect]
     Active Substance: HUMAN IMMUNOGLOBULIN G

REACTIONS (6)
  - Lung infection [Unknown]
  - Migraine [Unknown]
  - Lung operation [Unknown]
  - Seizure [Unknown]
  - Abdominal pain [Unknown]
  - Infusion site pain [Unknown]

NARRATIVE: CASE EVENT DATE: 2010
